FAERS Safety Report 10150625 (Version 1)
Quarter: 2014Q2

REPORT INFORMATION
  Report Type: Spontaneous
  Country: US (occurrence: US)
  Receive Date: 20140502
  Receipt Date: 20140502
  Transmission Date: 20141212
  Serious: No
  Sender: FDA-Public Use
  Company Number: US-PFIZER INC-2014120118

PATIENT
  Age: 55 Year
  Sex: Male
  Weight: 106 kg

DRUGS (8)
  1. GABAPENTIN [Suspect]
     Dosage: 50 MG, 3X/DAY
  2. GABAPENTIN [Suspect]
     Dosage: 600 MG, 2X/DAY
  3. FENTANYL [Concomitant]
     Indication: PAIN
     Dosage: 50 MCG/HOUR , EVERY 3 DAYS
  4. ZOFRAN [Concomitant]
     Indication: VOMITING
     Dosage: 8 MG, 2X/DAY
  5. ZOFRAN [Concomitant]
     Indication: NAUSEA
  6. VALACICLOVIR HYDROCHLORIDE [Concomitant]
     Dosage: 500 MG, DAILY
  7. FLUOXETINE HYDROCHLORIDE [Concomitant]
     Dosage: 200 MG, DAILY
  8. OXYCODONE/PARACETAMOL [Concomitant]
     Indication: PAIN
     Dosage: OXYCODONE (10MG) / PARACETAMOL (325 MG), THREE TO FOUR TIMES A DAY

REACTIONS (1)
  - Drug ineffective [Unknown]
